FAERS Safety Report 4930477-4 (Version None)
Quarter: 2006Q1

REPORT INFORMATION
  Report Type: 
  Country: None (occurrence: None)
  Receive Date: 20060227
  Receipt Date: 20060217
  Transmission Date: 20060701
  Serious: Yes (Other)
  Sender: FDA-Public Use
  Company Number: 218824

PATIENT
  Age: 44 Year
  Sex: Female
  Weight: 89.1 kg

DRUGS (1)
  1. OMALIZUMAB (OMALIZUMAB) PWDR + SOLVENT, INJECTION SOLN 150 MG [Suspect]
     Indication: ASTHMA
     Dosage: 300 MG Q4W SUBCUTANEOUS
     Route: 058
     Dates: start: 20050114, end: 20050715

REACTIONS (2)
  - DERMATITIS [None]
  - SKIN OEDEMA [None]
